FAERS Safety Report 5643845-2 (Version None)
Quarter: 2008Q1

REPORT INFORMATION
  Report Type: 
  Country: None (occurrence: None)
  Receive Date: 20080131
  Receipt Date: 20071005
  Transmission Date: 20080703
  Serious: Yes (Hospitalization, Other)
  Sender: FDA-Public Use
  Company Number: 163-21880-07100378

PATIENT
  Age: 86 Year
  Sex: Female

DRUGS (11)
  1. REVLIMID [Suspect]
     Indication: MULTIPLE MYELOMA
     Dosage: 25 MG, QD X 21 DAYS, ORAL
     Route: 048
     Dates: start: 20070104, end: 20070601
  2. LASIX [Concomitant]
  3. TOPROL-XL [Concomitant]
  4. ASPIRIN [Concomitant]
  5. PROCARDIA [Concomitant]
  6. CLINIDINE (CLONIDINE) [Concomitant]
  7. VYTORIN [Concomitant]
  8. COUMADIN [Concomitant]
  9. ALDACTONE [Concomitant]
  10. LORTAB [Concomitant]
  11. DECADRON [Concomitant]

REACTIONS (4)
  - ATRIAL FIBRILLATION [None]
  - CARDIAC FAILURE CONGESTIVE [None]
  - DYSPNOEA [None]
  - FULL BLOOD COUNT DECREASED [None]
